FAERS Safety Report 22781974 (Version 5)
Quarter: 2024Q2

REPORT INFORMATION
  Report Type: Report from Study
  Country: GB (occurrence: GB)
  Receive Date: 20230803
  Receipt Date: 20240619
  Transmission Date: 20240716
  Serious: Yes (Other)
  Sender: FDA-Public Use
  Company Number: GB-002147023-NVSC2021GB241749

PATIENT
  Age: 63 Year
  Sex: Male

DRUGS (2)
  1. MAYZENT [Suspect]
     Active Substance: SIPONIMOD
     Indication: Secondary progressive multiple sclerosis
     Dosage: UNK UNK, QD
     Route: 048
     Dates: start: 20210726
  2. MAYZENT [Suspect]
     Active Substance: SIPONIMOD
     Dosage: UNK, QD
     Route: 048
     Dates: start: 20240109

REACTIONS (18)
  - Basal cell carcinoma [Unknown]
  - Muscle spasms [Recovered/Resolved]
  - Fall [Recovered/Resolved]
  - Skin abrasion [Recovered/Resolved]
  - Skin lesion [Unknown]
  - Dry skin [Unknown]
  - Heart rate decreased [Unknown]
  - Hypertension [Unknown]
  - Vision blurred [Unknown]
  - Mobility decreased [Unknown]
  - Headache [Unknown]
  - Mouth ulceration [Not Recovered/Not Resolved]
  - Product dose omission in error [Unknown]
  - Paraesthesia [Not Recovered/Not Resolved]
  - Grip strength decreased [Unknown]
  - Sensory loss [Unknown]
  - Skin discharge [Unknown]
  - Dermatitis [Unknown]
